FAERS Safety Report 22593581 (Version 1)
Quarter: 2023Q2

REPORT INFORMATION
  Report Type: Spontaneous
  Country: CN (occurrence: None)
  Receive Date: 20230613
  Receipt Date: 20230613
  Transmission Date: 20230721
  Serious: Yes (Other)
  Sender: FDA-Public Use
  Company Number: CN-ROCHE-3366701

PATIENT
  Age: 62 Year
  Sex: Male

DRUGS (1)
  1. ROZLYTREK [Suspect]
     Active Substance: ENTRECTINIB
     Indication: Lung neoplasm malignant
     Route: 065

REACTIONS (5)
  - Hyperpyrexia [Unknown]
  - Dizziness [Unknown]
  - Vomiting [Unknown]
  - Cough [Unknown]
  - Tachypnoea [Unknown]

NARRATIVE: CASE EVENT DATE: 20230609
